FAERS Safety Report 7125235-9 (Version None)
Quarter: 2010Q4

REPORT INFORMATION
  Report Type: 
  Country: None (occurrence: None)
  Receive Date: 20101129
  Receipt Date: 20101117
  Transmission Date: 20110411
  Serious: Yes (Death)
  Sender: FDA-Public Use
  Company Number: HK-GENZYME-CLOF-1001320

PATIENT
  Sex: Male
  Weight: 73 kg

DRUGS (2)
  1. CLOFARABINE [Suspect]
     Indication: ACUTE MYELOID LEUKAEMIA RECURRENT
     Dosage: 40 MG/M2, QDX5
     Route: 042
     Dates: start: 20100105, end: 20100109
  2. CYTARABINE [Suspect]
     Indication: ACUTE MYELOID LEUKAEMIA RECURRENT
     Dosage: 1 G/M2, QDX5
     Route: 042
     Dates: start: 20100105, end: 20100109

REACTIONS (6)
  - ACUTE RESPIRATORY FAILURE [None]
  - ESCHERICHIA BACTERAEMIA [None]
  - GENERAL PHYSICAL HEALTH DETERIORATION [None]
  - RENAL FAILURE ACUTE [None]
  - SEPTIC SHOCK [None]
  - STREPTOCOCCAL BACTERAEMIA [None]
